FAERS Safety Report 7474957-9 (Version None)
Quarter: 2011Q2

REPORT INFORMATION
  Report Type: 
  Country: None (occurrence: None)
  Receive Date: 20110509
  Receipt Date: 20110509
  Transmission Date: 20111010
  Serious: Yes (Hospitalization)
  Sender: FDA-Public Use
  Company Number: None

PATIENT
  Age: 57 Year
  Sex: Female
  Weight: 68.0396 kg

DRUGS (1)
  1. LYRICA [Suspect]
     Indication: PAIN
     Dosage: 1 CAPSULE 3 / DAY PO
     Route: 048
     Dates: start: 20110201, end: 20110212

REACTIONS (2)
  - INJURY [None]
  - SYNCOPE [None]
